FAERS Safety Report 25684806 (Version 2)
Quarter: 2025Q3

REPORT INFORMATION
  Report Type: Spontaneous
  Country: EU (occurrence: EU)
  Receive Date: 20250815
  Receipt Date: 20250821
  Transmission Date: 20251020
  Serious: Yes (Death, Hospitalization, Other)
  Sender: CELLTRION
  Company Number: EU-BIOVITRUM-2025-FR-005181

PATIENT

DRUGS (16)
  1. INFLIXIMAB [Suspect]
     Active Substance: INFLIXIMAB
     Indication: Product used for unknown indication
  2. PEGCETACOPLAN [Suspect]
     Active Substance: PEGCETACOPLAN
     Indication: Paroxysmal nocturnal haemoglobinuria
     Route: 058
     Dates: start: 202311
  3. PANTOPRAZOLE [Suspect]
     Active Substance: PANTOPRAZOLE
     Indication: Product used for unknown indication
  4. APIXABAN [Suspect]
     Active Substance: APIXABAN
     Indication: Product used for unknown indication
  5. DEFERASIROX [Suspect]
     Active Substance: DEFERASIROX
     Indication: Product used for unknown indication
  6. PENICILLIN V [Suspect]
     Active Substance: PENICILLIN V
     Indication: Product used for unknown indication
  7. METEOXANE [Suspect]
     Active Substance: AMOBARBITAL\BELLADONNA LEAF\DIMETHICONE\ERGOTAMINE TARTRATE
     Indication: Product used for unknown indication
  8. POTASSIUM CHLORIDE [Suspect]
     Active Substance: POTASSIUM CHLORIDE
     Indication: Product used for unknown indication
  9. URSODIOL [Suspect]
     Active Substance: URSODIOL
     Indication: Product used for unknown indication
  10. URSODIOL [Suspect]
     Active Substance: URSODIOL
     Indication: Product used for unknown indication
  11. PREDNISONE [Suspect]
     Active Substance: PREDNISONE
     Indication: Product used for unknown indication
  12. PENICILLIN V [Suspect]
     Active Substance: PENICILLIN V
     Indication: Product used for unknown indication
  13. METHYLPREDNISOLONE [Suspect]
     Active Substance: METHYLPREDNISOLONE
     Indication: Product used for unknown indication
  14. DOMPERIDONE [Suspect]
     Active Substance: DOMPERIDONE
     Indication: Product used for unknown indication
  15. METOCLOPRAMIDE [Suspect]
     Active Substance: METOCLOPRAMIDE
     Indication: Product used for unknown indication
  16. ONDANSETRON [Suspect]
     Active Substance: ONDANSETRON
     Indication: Product used for unknown indication

REACTIONS (12)
  - Septic shock [Fatal]
  - Escherichia infection [Fatal]
  - Campylobacter infection [Fatal]
  - Multiple organ dysfunction syndrome [Fatal]
  - Crohn^s disease [Fatal]
  - Pulmonary embolism [Fatal]
  - Splenic embolism [Fatal]
  - Thrombocytopenia [Fatal]
  - Acute kidney injury [Fatal]
  - Myelodysplastic syndrome [Fatal]
  - Gene mutation [Fatal]
  - Drug ineffective [Unknown]
